FAERS Safety Report 16414497 (Version 1)
Quarter: 2019Q2

REPORT INFORMATION
  Report Type: Spontaneous
  Country: CA (occurrence: CA)
  Receive Date: 20190611
  Receipt Date: 20190611
  Transmission Date: 20190711
  Serious: Yes (Hospitalization)
  Sender: FDA-Public Use
  Company Number: CA-PFIZER INC-2019248883

PATIENT
  Age: 86 Year
  Sex: Female

DRUGS (8)
  1. VENLAFAXINE HCL [Suspect]
     Active Substance: VENLAFAXINE HYDROCHLORIDE
     Indication: DEPRESSION
     Dosage: 112.5 MG, 1X/DAY
     Route: 048
  2. VITALUX [ASCORBIC ACID;BETACAROTENE;COPPER;RIBOFLAVIN;SELENIUM;TOCOFER [Concomitant]
     Active Substance: MINERALS\VITAMINS
     Dosage: UNK
  3. ASA [Suspect]
     Active Substance: ASPIRIN
     Indication: CEREBROVASCULAR ACCIDENT
     Dosage: 80 MG, 1X/DAY
     Route: 048
  4. COMPLEX B [CALCIUM PANTOTHENATE;CYANOCOBALAMIN;NICOTINAMIDE;PYRIDOXINE [Concomitant]
     Dosage: UNK
  5. CALCIUM [Concomitant]
     Active Substance: CALCIUM
     Dosage: UNK
  6. RALOXIFENE. [Concomitant]
     Active Substance: RALOXIFENE
     Dosage: UNK
  7. GALANTAMINE. [Concomitant]
     Active Substance: GALANTAMINE
     Dosage: UNK
  8. VITAMIN D NOS [Concomitant]
     Active Substance: VITAMIN D NOS
     Dosage: UNK

REACTIONS (3)
  - Contusion [Recovered/Resolved]
  - Platelet count increased [Recovered/Resolved]
  - Ecchymosis [Recovered/Resolved]
